FAERS Safety Report 10095902 (Version 2)
Quarter: 2014Q2

REPORT INFORMATION
  Report Type: Report from Study
  Country: US (occurrence: US)
  Receive Date: 20140422
  Receipt Date: 20140425
  Transmission Date: 20141212
  Serious: Yes (Hospitalization)
  Sender: FDA-Public Use
  Company Number: US-ACTELION-A-NJ2014-97757

PATIENT
  Age: 73 Year
  Sex: Male

DRUGS (2)
  1. VENTAVIS [Suspect]
     Indication: PULMONARY ARTERIAL HYPERTENSION
     Dosage: 5 MCG, 6-9X/DAY
     Route: 055
     Dates: start: 20131230
  2. ADCIRCA [Concomitant]

REACTIONS (3)
  - Aneurysm ruptured [Unknown]
  - Aortic aneurysm [Unknown]
  - Abdominal pain [Unknown]
